FAERS Safety Report 17804499 (Version 2)
Quarter: 2020Q4

REPORT INFORMATION
  Report Type: Report from Study
  Country: US (occurrence: US)
  Receive Date: 20200519
  Receipt Date: 20201030
  Transmission Date: 20210113
  Serious: Yes (Hospitalization)
  Sender: FDA-Public Use
  Company Number: US-EISAI MEDICAL RESEARCH-EC-2020-068697

PATIENT
  Age: 63 Year
  Sex: Female
  Weight: 79.5 kg

DRUGS (18)
  1. LENVIMA [Suspect]
     Active Substance: LENVATINIB
     Dosage: 1, SOMETIMES 2 CAPSULES AT NIGHT
     Route: 048
     Dates: start: 2020
  2. ENOXAPARIN [Concomitant]
     Active Substance: ENOXAPARIN
  3. ELIQUIS [Concomitant]
     Active Substance: APIXABAN
  4. LOSARTAN. [Concomitant]
     Active Substance: LOSARTAN
  5. ONDANSETRON [Concomitant]
     Active Substance: ONDANSETRON
  6. POTASSIUM [Concomitant]
     Active Substance: POTASSIUM
  7. LENVIMA [Suspect]
     Active Substance: LENVATINIB
     Indication: ENDOMETRIAL CANCER
     Route: 048
     Dates: start: 20200108, end: 20200514
  8. SERTRALINE [Concomitant]
     Active Substance: SERTRALINE HYDROCHLORIDE
  9. ZYRTEC [Concomitant]
     Active Substance: CETIRIZINE HYDROCHLORIDE
  10. CHLORTHALIDONE. [Concomitant]
     Active Substance: CHLORTHALIDONE
  11. KEYTRUDA [Concomitant]
     Active Substance: PEMBROLIZUMAB
  12. SLEEP AID [Concomitant]
  13. LENVIMA [Suspect]
     Active Substance: LENVATINIB
     Route: 048
     Dates: start: 2020, end: 2020
  14. AZELASTINE. [Concomitant]
     Active Substance: AZELASTINE HYDROCHLORIDE
  15. COLACE [Concomitant]
     Active Substance: DOCUSATE SODIUM
  16. ALEVE [Concomitant]
     Active Substance: NAPROXEN SODIUM
  17. AMOXICILLIN. [Concomitant]
     Active Substance: AMOXICILLIN
  18. LEVOTHYROXINE. [Concomitant]
     Active Substance: LEVOTHYROXINE

REACTIONS (8)
  - Hypertension [Unknown]
  - Dehydration [Unknown]
  - Diarrhoea [Unknown]
  - Skin ulcer [Unknown]
  - Skin discolouration [Unknown]
  - Nausea [Recovering/Resolving]
  - Vomiting [Recovering/Resolving]
  - Hyperkeratosis [Unknown]

NARRATIVE: CASE EVENT DATE: 2020
